FAERS Safety Report 4334902-1 (Version None)
Quarter: 2004Q2

REPORT INFORMATION
  Report Type: 
  Country: None (occurrence: None)
  Receive Date: 20040405
  Receipt Date: 20040322
  Transmission Date: 20050107
  Serious: Yes (Other)
  Sender: FDA-Public Use
  Company Number: 2004206099JP

PATIENT
  Age: 55 Year
  Sex: Female

DRUGS (3)
  1. PROVERA [Suspect]
     Indication: VAGINITIS ATROPHIC
     Dosage: 2.5 MG, QD, ORAL
     Route: 048
  2. CONJUGATED ESTROGENS [Suspect]
     Indication: VAGINITIS ATROPHIC
     Dosage: 0.625 MG, QD, ORAL
     Route: 048
  3. TAMOXIFEN CITRATE [Concomitant]

REACTIONS (3)
  - BREAST CANCER METASTATIC [None]
  - METASTASES TO BREAST [None]
  - METASTASES TO CENTRAL NERVOUS SYSTEM [None]
